FAERS Safety Report 12238907 (Version 1)
Quarter: 2016Q2

REPORT INFORMATION
  Report Type: Spontaneous
  Country: US (occurrence: US)
  Receive Date: 20160405
  Receipt Date: 20160405
  Transmission Date: 20160815
  Serious: No
  Sender: FDA-Public Use
  Company Number: US-PFIZER INC-2016153043

PATIENT
  Age: 37 Year
  Sex: Female
  Weight: 125.64 kg

DRUGS (6)
  1. SODIUM [Suspect]
     Active Substance: SODIUM
     Indication: BLOOD SODIUM DECREASED
     Dosage: UNK
     Dates: start: 201602, end: 2016
  2. VANCOMYCIN HCL [Suspect]
     Active Substance: VANCOMYCIN HYDROCHLORIDE
     Indication: STAPHYLOCOCCAL INFECTION
     Dosage: UNK
     Dates: start: 20160214, end: 201603
  3. PERCOCET [Concomitant]
     Active Substance: ACETAMINOPHEN\OXYCODONE HYDROCHLORIDE
     Indication: ARTHRALGIA
     Dosage: 2 TABLETS, EVERY 4 HOURS AS NEEDED
     Route: 048
  4. ZYVOX [Suspect]
     Active Substance: LINEZOLID
     Indication: STAPHYLOCOCCAL INFECTION
     Dosage: UNK
     Route: 048
  5. ZINC [Concomitant]
     Active Substance: ZINC\ZINC CHLORIDE
     Indication: BLOOD IRON DECREASED
     Dosage: 1 TABLET, 2X/DAY
     Route: 048
  6. ZYVOX [Suspect]
     Active Substance: LINEZOLID
     Indication: STAPHYLOCOCCAL INFECTION
     Dosage: UNK
     Route: 042

REACTIONS (4)
  - Drug hypersensitivity [Unknown]
  - Rash [Recovered/Resolved]
  - Blood sodium decreased [Unknown]
  - Pruritus [Unknown]

NARRATIVE: CASE EVENT DATE: 201603
